FAERS Safety Report 12760865 (Version 4)
Quarter: 2016Q4

REPORT INFORMATION
  Report Type: Report from Study
  Country: US (occurrence: US)
  Receive Date: 20160919
  Receipt Date: 20161102
  Transmission Date: 20170207
  Serious: Yes (Hospitalization)
  Sender: FDA-Public Use
  Company Number: US-ACTELION-A-US2016-142421

PATIENT
  Age: 70 Year
  Sex: Female

DRUGS (1)
  1. VELETRI [Suspect]
     Active Substance: EPOPROSTENOL
     Indication: PULMONARY HYPERTENSION
     Dosage: 18 NG/KG, PER MIN
     Route: 042
     Dates: start: 20151117

REACTIONS (9)
  - Fall [Unknown]
  - Malnutrition [Unknown]
  - Hip arthroplasty [Unknown]
  - Mechanical ventilation [Unknown]
  - Gastrointestinal tube insertion [Unknown]
  - Procedural hypotension [Unknown]
  - Infection [Unknown]
  - Hip fracture [Unknown]
  - Decreased appetite [Unknown]
